FAERS Safety Report 5374402-3 (Version None)
Quarter: 2007Q2

REPORT INFORMATION
  Report Type: 
  Country: None (occurrence: None)
  Receive Date: 20070629
  Receipt Date: 20070618
  Transmission Date: 20071010
  Serious: Yes (Life-Threatening)
  Sender: FDA-Public Use
  Company Number: DK-KINGPHARMUSA00001-K200700754

PATIENT

DRUGS (8)
  1. EPIPEN [Suspect]
     Indication: ANAPHYLAXIS PROPHYLAXIS
     Dosage: .3 MG, UNK
  2. ACYCLOVIR [Concomitant]
  3. ASPIRIN [Concomitant]
  4. ATENOLOL [Concomitant]
  5. FLUOXETINE [Concomitant]
  6. FLUVASTATIN [Concomitant]
  7. MAXIDEX  /00016001/ [Concomitant]
  8. OMEPRAZOLE [Concomitant]

REACTIONS (3)
  - ACUTE MYOCARDIAL INFARCTION [None]
  - CHEST PAIN [None]
  - STENT OCCLUSION [None]
